FAERS Safety Report 8558669 (Version 3)
Quarter: 2012Q4

REPORT INFORMATION
  Report Type: Report from Study
  Country: US (occurrence: US)
  Receive Date: 20120511
  Receipt Date: 20120905
  Transmission Date: 20130627
  Serious: Yes (Other)
  Sender: FDA-Public Use
  Company Number: US-PURDUE-USA-2012-0086609

PATIENT
  Sex: Male
  Weight: 61.63 kg

DRUGS (2)
  1. OXYCONTIN (NDA 22-272) [Suspect]
     Indication: INTERVERTEBRAL DISC DEGENERATION
     Dosage: 40 mg, 1 tab in AM, 2 tabs at noon and 1 tab evening
  2. OXYCONTIN (NDA 22-272) [Suspect]
     Indication: NEUROPATHY PERIPHERAL
     Dosage: 160 mg, daily
     Dates: start: 20120101

REACTIONS (1)
  - Liver transplant rejection [Not Recovered/Not Resolved]
